FAERS Safety Report 11605962 (Version 2)
Quarter: 2015Q4

REPORT INFORMATION
  Report Type: Spontaneous
  Country: JP (occurrence: JP)
  Receive Date: 20151007
  Receipt Date: 20151027
  Transmission Date: 20160304
  Serious: Yes (Death, Other)
  Sender: FDA-Public Use
  Company Number: JP-GLAXOSMITHKLINE-JP2015JPN141436

PATIENT
  Age: 24 Year
  Sex: Male

DRUGS (6)
  1. DOBUTAMINE [Concomitant]
     Active Substance: DOBUTAMINE\DOBUTAMINE HYDROCHLORIDE
     Dosage: UNK
  2. FUROSEMIDE. [Concomitant]
     Active Substance: FUROSEMIDE
     Dosage: UNK
  3. EPOPROSTENOL. [Suspect]
     Active Substance: EPOPROSTENOL
     Route: 042
  4. TOLVAPTAN [Concomitant]
     Active Substance: TOLVAPTAN
     Dosage: UNK
  5. UNKNOWNDRUG [Concomitant]
     Active Substance: UNSPECIFIED INGREDIENT
     Dosage: UNK
  6. MILRINONE [Concomitant]
     Active Substance: MILRINONE
     Dosage: UNK

REACTIONS (9)
  - Ventricular hypokinesia [Unknown]
  - Bronchial wall thickening [Unknown]
  - Hypoxia [Unknown]
  - Dilatation ventricular [Unknown]
  - Right ventricular hypertrophy [Unknown]
  - Respiratory failure [Fatal]
  - Atelectasis [Unknown]
  - Urine output increased [Unknown]
  - Pericardial effusion [Unknown]
